FAERS Safety Report 7067892 (Version 2)
Quarter: 2014Q1

REPORT INFORMATION
  Report Type: Spontaneous
  Country: US (occurrence: None)
  Receive Date: 20090723
  Receipt Date: 20140206
  Transmission Date: 20141002
  Serious: Yes (Other)
  Sender: FDA-Public Use
  Company Number: 2009S1005525

PATIENT
  Age: 61 Year
  Sex: Female
  Weight: 99.34 kg

DRUGS (9)
  1. PHOSPHO-SODA [Suspect]
     Indication: COLONOSCOPY
     Dosage: 90 ML, 2 IN 24 HOURS, ORAL
     Dates: start: 20070805, end: 20070806
  2. VERAPAMIL (VERAPAMIL) [Concomitant]
  3. HYDROCHLOROTHIAZIDE (HYDROCHLOROTHIAZIDE) [Concomitant]
  4. ASPIRIN (ACETYLSALICYLIC ACID) [Concomitant]
  5. NIACIN (NICOTINIC ACID) [Concomitant]
  6. VITAMIN C (ASCORBIC ACID) [Concomitant]
  7. MULTIVITAMIN (ERGOCALCIFEROL, ASCORBIC ACID, PYRIDOXINE HYDROCHLORIDE, THIAMINE HYDROCHLORIDE, RETINOL, RIBOFLAVIN, NICOTINAMIDE, CALCIUM PANTOTHENATE) [Concomitant]
  8. CALCIUM (CALCIUM) [Concomitant]
  9. KLOR-CON (POTASSIUM CHLORIDE) [Concomitant]

REACTIONS (2)
  - Blood creatinine increased [None]
  - Renal failure chronic [None]
